FAERS Safety Report 8094516-7 (Version None)
Quarter: 2012Q1

REPORT INFORMATION
  Report Type: 
  Country: None (occurrence: None)
  Receive Date: 20120131
  Receipt Date: 20120123
  Transmission Date: 20120608
  Serious: Yes (Hospitalization, Other)
  Sender: FDA-Public Use
  Company Number: HR-JNJFOC-20120110928

PATIENT
  Sex: Female

DRUGS (11)
  1. RISPERIDONE [Suspect]
     Indication: PSYCHOTIC DISORDER
     Route: 065
     Dates: start: 20111026
  2. RISPERIDONE [Suspect]
     Route: 065
     Dates: start: 20071201, end: 20111026
  3. RISPERIDONE [Suspect]
     Indication: SCHIZOAFFECTIVE DISORDER
     Route: 065
     Dates: start: 20111026
  4. RISPERIDONE [Suspect]
     Route: 065
     Dates: start: 20071201, end: 20111026
  5. SERTRALINE HYDROCHLORIDE [Suspect]
     Indication: PSYCHOTIC DISORDER
     Dosage: 0,1,0 TAKEN WITH LUNCH
     Route: 065
     Dates: start: 20071201
  6. RISPERIDONE [Suspect]
     Route: 065
     Dates: start: 20111026
  7. CLOZAPINE [Suspect]
     Indication: SCHIZOAFFECTIVE DISORDER
     Route: 065
  8. RISPERIDONE [Suspect]
     Indication: BORDERLINE PERSONALITY DISORDER
     Route: 065
     Dates: start: 20071201, end: 20111026
  9. CLOZAPINE [Suspect]
     Indication: BORDERLINE PERSONALITY DISORDER
     Route: 065
  10. SERTRALINE HYDROCHLORIDE [Suspect]
     Indication: BORDERLINE PERSONALITY DISORDER
     Dosage: 0,1,0 TAKEN WITH LUNCH
     Route: 065
     Dates: start: 20071201
  11. CLOZAPINE [Suspect]
     Indication: PSYCHOTIC DISORDER
     Route: 065

REACTIONS (3)
  - ENDOMETRIOSIS [None]
  - DEPRESSION [None]
  - UTERINE LEIOMYOMA [None]
